FAERS Safety Report 18039232 (Version 1)
Quarter: 2020Q3

REPORT INFORMATION
  Report Type: Spontaneous
  Country: US (occurrence: US)
  Receive Date: 20200717
  Receipt Date: 20200717
  Transmission Date: 20201103
  Serious: Yes (Hospitalization, Other)
  Sender: FDA-Public Use
  Company Number: US-GILEAD-2020-0482968

PATIENT
  Age: 53 Year
  Sex: Male

DRUGS (23)
  1. GADAVIST [Concomitant]
     Active Substance: GADOBUTROL
  2. LEVAQUIN [Concomitant]
     Active Substance: LEVOFLOXACIN
  3. ZOVIRAX [Concomitant]
     Active Substance: ACYCLOVIR
  4. MEPHYTON [Concomitant]
     Active Substance: PHYTONADIONE
  5. LACTATED RINGERS SOLUTION [Concomitant]
     Active Substance: CALCIUM CHLORIDE\POTASSIUM CHLORIDE\SODIUM CHLORIDE\SODIUM LACTATE
  6. TYLENOL [Concomitant]
     Active Substance: ACETAMINOPHEN
  7. SODIUM CHLORIDE. [Concomitant]
     Active Substance: SODIUM CHLORIDE
  8. MYCOSTATIN [Concomitant]
     Active Substance: NYSTATIN
  9. MAGNESIUM SULFATE. [Concomitant]
     Active Substance: MAGNESIUM SULFATE
  10. BENADRYL [Concomitant]
     Active Substance: DIPHENHYDRAMINE HYDROCHLORIDE
  11. YESCARTA [Suspect]
     Active Substance: AXICABTAGENE CILOLEUCEL
     Indication: DIFFUSE LARGE B-CELL LYMPHOMA
     Dosage: 190.60X10^6, ONCE
     Route: 042
     Dates: start: 20200526, end: 20200526
  12. POTASSIUM PHOSPHATES [Concomitant]
     Active Substance: POTASSIUM PHOSPHATE, DIBASIC\POTASSIUM PHOSPHATE, MONOBASIC
  13. MAXIPIME [Concomitant]
     Active Substance: CEFEPIME HYDROCHLORIDE
  14. ADRENALIN (EPINEPHRINE) [Concomitant]
     Active Substance: EPINEPHRINE
  15. NOVOLOG [Concomitant]
     Active Substance: INSULIN ASPART
  16. ROXICODONE [Concomitant]
     Active Substance: OXYCODONE HYDROCHLORIDE
  17. DIFLUCAN [Concomitant]
     Active Substance: FLUCONAZOLE
  18. KEPPRA [Concomitant]
     Active Substance: LEVETIRACETAM
  19. K PHOS NEUTRAL [Concomitant]
     Active Substance: POTASSIUM PHOSPHATE, MONOBASIC\SODIUM PHOSPHATE, DIBASIC, ANHYDROUS\SODIUM PHOSPHATE, MONOBASIC, MONOHYDRATE
  20. ZYLOPRIM [Concomitant]
     Active Substance: ALLOPURINOL
  21. PERIDEX [DEXAMETHASONE] [Concomitant]
     Active Substance: DEXAMETHASONE
  22. VFEND [Concomitant]
     Active Substance: VORICONAZOLE
  23. BACTRIM [Concomitant]
     Active Substance: SULFAMETHOXAZOLE\TRIMETHOPRIM

REACTIONS (3)
  - Neurotoxicity [Recovered/Resolved]
  - Coagulopathy [Unknown]
  - Cytokine release syndrome [Recovered/Resolved]

NARRATIVE: CASE EVENT DATE: 20200526
